FAERS Safety Report 4787021-4 (Version None)
Quarter: 2005Q4

REPORT INFORMATION
  Report Type: 
  Country: None (occurrence: None)
  Receive Date: 20051004
  Receipt Date: 20050926
  Transmission Date: 20060501
  Serious: Yes (Hospitalization)
  Sender: FDA-Public Use
  Company Number: FI-JNJFOC-20050906212

PATIENT
  Age: 23 Year
  Sex: Female

DRUGS (7)
  1. REMICADE [Suspect]
     Route: 042
  2. REMICADE [Suspect]
     Indication: CROHN'S DISEASE
     Route: 042
  3. IMUREL [Suspect]
     Indication: CROHN'S DISEASE
     Route: 048
  4. TRIKOZOL [Concomitant]
     Indication: CROHN'S DISEASE
     Route: 048
  5. ASACOL [Concomitant]
     Indication: CROHN'S DISEASE
     Route: 048
  6. PRECOSA [Concomitant]
     Route: 065
  7. AGIOCUR [Concomitant]
     Route: 065

REACTIONS (1)
  - HEPATIC NEOPLASM MALIGNANT [None]
